FAERS Safety Report 19829279 (Version 2)
Quarter: 2021Q4

REPORT INFORMATION
  Report Type: Spontaneous
  Country: NL (occurrence: NL)
  Receive Date: 20210914
  Receipt Date: 20211026
  Transmission Date: 20220304
  Serious: Yes (Death)
  Sender: FDA-Public Use
  Company Number: NL-BEH-2021130728

PATIENT
  Age: 74 Year
  Sex: Male

DRUGS (5)
  1. PREDNISONE [Suspect]
     Active Substance: PREDNISONE
     Indication: Miller Fisher syndrome
     Dosage: 1 MILLIGRAM/KILOGRAM, QD
  2. HUMAN IMMUNOGLOBULIN G [Suspect]
     Active Substance: HUMAN IMMUNOGLOBULIN G
     Indication: Miller Fisher syndrome
     Dosage: 0.4 GRAM PER KILOGRAM, QD, 2 CYCLES
     Route: 042
  3. HUMAN IMMUNOGLOBULIN G [Suspect]
     Active Substance: HUMAN IMMUNOGLOBULIN G
     Dosage: 1 GRAM PER KILOGRAM IN 2 DAYS, 1 CYCLE
     Route: 042
  4. RITUXIMAB [Suspect]
     Active Substance: RITUXIMAB
     Indication: Miller Fisher syndrome
     Dosage: 1000 MILLIGRAM EVERY TWO WEEKS
  5. INFLIXIMAB [Suspect]
     Active Substance: INFLIXIMAB
     Indication: Miller Fisher syndrome
     Dosage: 5 MILLIGRAM/KILOGRAM, SINGLE

REACTIONS (4)
  - Drug ineffective [Fatal]
  - Drug ineffective for unapproved indication [Fatal]
  - Pneumonia [Fatal]
  - Off label use [Fatal]
